FAERS Safety Report 20750242 (Version 15)
Quarter: 2025Q2

REPORT INFORMATION
  Report Type: Report from Study
  Country: US (occurrence: US)
  Receive Date: 20220426
  Receipt Date: 20250527
  Transmission Date: 20250717
  Serious: Yes (Hospitalization, Other)
  Sender: TAKEDA
  Company Number: US-PAREXEL-2021-KAM-US003481

PATIENT
  Sex: Female
  Weight: 87 kg

DRUGS (28)
  1. GLASSIA [Suspect]
     Active Substance: .ALPHA.1-PROTEINASE INHIBITOR HUMAN
     Indication: Alpha-1 antitrypsin deficiency
     Dosage: 60 MILLIGRAM/KILOGRAM, 1/WEEK
     Dates: start: 20180404
  2. GLASSIA [Suspect]
     Active Substance: .ALPHA.1-PROTEINASE INHIBITOR HUMAN
     Dosage: UNK, 1/WEEK
  3. EPINEPHRINE [Concomitant]
     Active Substance: EPINEPHRINE
  4. ARNUITY ELLIPTA [Concomitant]
     Active Substance: FLUTICASONE FUROATE
  5. PROAIR HFA [Concomitant]
     Active Substance: ALBUTEROL SULFATE
  6. FUROSEMIDE [Concomitant]
     Active Substance: FUROSEMIDE
  7. CYMBALTA [Concomitant]
     Active Substance: DULOXETINE HYDROCHLORIDE
  8. ANORO ELLIPTA [Concomitant]
     Active Substance: UMECLIDINIUM BROMIDE\VILANTEROL TRIFENATATE
  9. FLUTICASONE PROPIONATE [Concomitant]
     Active Substance: FLUTICASONE PROPIONATE
  10. DIPHENHYDRAMINE [Concomitant]
     Active Substance: DIPHENHYDRAMINE
  11. SODIUM CHLORIDE [Concomitant]
     Active Substance: SODIUM CHLORIDE
  12. HEPARIN [Concomitant]
     Active Substance: HEPARIN SODIUM
  13. OXYGEN [Concomitant]
     Active Substance: OXYGEN
  14. FLONASE [Concomitant]
     Active Substance: FLUTICASONE PROPIONATE
  15. TERBINAFINE HYDROCHLORIDE [Concomitant]
     Active Substance: TERBINAFINE HYDROCHLORIDE
  16. WELLBUTRIN XL [Concomitant]
     Active Substance: BUPROPION HYDROCHLORIDE
  17. PROVENTIL [Concomitant]
     Active Substance: ALBUTEROL
  18. IBUPROFEN [Concomitant]
     Active Substance: IBUPROFEN
  19. TERBINAFINE [Concomitant]
     Active Substance: TERBINAFINE
  20. MICROZIDE [Concomitant]
     Active Substance: HYDROCHLOROTHIAZIDE
  21. ALBUTEROL\IPRATROPIUM [Concomitant]
     Active Substance: ALBUTEROL\IPRATROPIUM
  22. BUSPIRONE [Concomitant]
     Active Substance: BUSPIRONE HYDROCHLORIDE
  23. Allergy Relief and Nasal Decongestant 24 Hour [Concomitant]
  24. BUSPIRONE HCL [Concomitant]
     Active Substance: BUSPIRONE HYDROCHLORIDE
  25. LISINOPRIL [Concomitant]
     Active Substance: LISINOPRIL
  26. MUCINEX DM [Concomitant]
     Active Substance: DEXTROMETHORPHAN HYDROBROMIDE\GUAIFENESIN
  27. DIPHENHYDRAMINE HYDROCHLORIDE [Concomitant]
     Active Substance: DIPHENHYDRAMINE HYDROCHLORIDE
  28. METOPROLOL SUCCINATE [Concomitant]
     Active Substance: METOPROLOL SUCCINATE

REACTIONS (18)
  - Pneumonia [Unknown]
  - Chronic obstructive pulmonary disease [Unknown]
  - Rash papular [Unknown]
  - Tremor [Unknown]
  - Muscular weakness [Unknown]
  - Weight decreased [Unknown]
  - Oxygen consumption increased [Unknown]
  - Respiratory tract infection [Unknown]
  - Wheezing [Unknown]
  - Circumstance or information capable of leading to medication error [Unknown]
  - Urticaria [Unknown]
  - Malaise [Unknown]
  - Sinusitis [Recovered/Resolved]
  - Bronchitis [Not Recovered/Not Resolved]
  - Cough [Unknown]
  - Dyspnoea [Unknown]
  - Insurance issue [Unknown]
  - Product use issue [Unknown]
